FAERS Safety Report 8196532-3 (Version None)
Quarter: 2012Q1

REPORT INFORMATION
  Report Type: 
  Country: None (occurrence: None)
  Receive Date: 20120309
  Receipt Date: 20120228
  Transmission Date: 20120608
  Serious: Yes (Hospitalization, Other)
  Sender: FDA-Public Use
  Company Number: CA-JNJFOC-20120214612

PATIENT
  Sex: Female
  Weight: 50 kg

DRUGS (5)
  1. IMURAN [Concomitant]
     Route: 065
  2. MESALAMINE [Concomitant]
     Route: 065
  3. RANITIDINE [Concomitant]
     Route: 048
  4. PANTOZOLE [Concomitant]
     Route: 065
  5. REMICADE [Suspect]
     Indication: CROHN'S DISEASE
     Dosage: AT WEEK 0, 2, 6 AND 8 WEEKS
     Route: 042
     Dates: start: 20111216

REACTIONS (7)
  - SURGERY [None]
  - ARTHRALGIA [None]
  - NIGHT SWEATS [None]
  - GASTROENTERITIS VIRAL [None]
  - INSOMNIA [None]
  - SMALL INTESTINAL OBSTRUCTION [None]
  - INCISION SITE HAEMORRHAGE [None]
